FAERS Safety Report 4462372-1 (Version None)
Quarter: 2004Q3

REPORT INFORMATION
  Report Type: 
  Country: None (occurrence: None)
  Receive Date: 20040923
  Receipt Date: 20040916
  Transmission Date: 20050211
  Serious: Yes (Other)
  Sender: FDA-Public Use
  Company Number: HQWYE098116SEP04

PATIENT
  Sex: Female

DRUGS (2)
  1. PANTOZOL (PANTOPRAZOLE, INJECTION) [Suspect]
     Indication: GASTROOESOPHAGEAL REFLUX DISEASE
     Dosage: 40 MG 1X PER 1 DAY INTRAVENOUS
     Route: 042
     Dates: start: 20040801, end: 20040801
  2. METOCLOPRAMIDE HYDROCHLORIDE [Suspect]
     Indication: DYSPHAGIA
     Dosage: 10 MG 1X PER 1 DAY INTRAVENOUS
     Route: 042
     Dates: start: 20040801, end: 20040801

REACTIONS (2)
  - ANAPHYLACTOID REACTION [None]
  - ANGIONEUROTIC OEDEMA [None]
